FAERS Safety Report 6931135-7 (Version None)
Quarter: 2010Q3

REPORT INFORMATION
  Report Type: 
  Country: None (occurrence: None)
  Receive Date: 20100817
  Receipt Date: 20100817
  Transmission Date: 20110219
  Serious: Yes (Hospitalization)
  Sender: FDA-Public Use
  Company Number: None

PATIENT
  Age: 75 Year
  Sex: Male
  Weight: 89 kg

DRUGS (1)
  1. LEVETIRACETAM [Suspect]
     Indication: CONVULSION PROPHYLAXIS
     Dosage: 500MG Q12 HOURS IV
     Route: 042
     Dates: start: 20100813, end: 20100815

REACTIONS (2)
  - AGGRESSION [None]
  - MENTAL STATUS CHANGES [None]
